FAERS Safety Report 19882049 (Version 1)
Quarter: 2021Q3

REPORT INFORMATION
  Report Type: Spontaneous
  Country: JP (occurrence: JP)
  Receive Date: 20210924
  Receipt Date: 20210924
  Transmission Date: 20211014
  Serious: Yes (Other)
  Sender: FDA-Public Use
  Company Number: JP-PFIZER INC-202101199356

PATIENT
  Age: 45 Year
  Sex: Male
  Weight: 66 kg

DRUGS (5)
  1. METHYLPREDNISOLONE SODIUM SUCCINATE. [Suspect]
     Active Substance: METHYLPREDNISOLONE SODIUM SUCCINATE
     Dosage: 500 MG
     Route: 042
  2. ALPROSTADIL. [Suspect]
     Active Substance: ALPROSTADIL
     Route: 042
  3. BASILIXIMAB [Suspect]
     Active Substance: BASILIXIMAB
     Route: 042
  4. ALBUMIN [Suspect]
     Active Substance: ALBUMIN HUMAN
     Route: 042
  5. DOPAMINE [Suspect]
     Active Substance: DOPAMINE HYDROCHLORIDE
     Route: 042

REACTIONS (1)
  - Anaphylactic shock [Recovering/Resolving]
